FAERS Safety Report 7046546-1 (Version None)
Quarter: 2010Q4

REPORT INFORMATION
  Report Type: 
  Country: None (occurrence: None)
  Receive Date: 20101015
  Receipt Date: 20101006
  Transmission Date: 20110411
  Serious: Yes (Hospitalization)
  Sender: FDA-Public Use
  Company Number: US-BIOGENIDEC-2010BI034818

PATIENT
  Age: 46 Year
  Sex: Female

DRUGS (1)
  1. TYSABRI [Suspect]
     Indication: MULTIPLE SCLEROSIS
     Route: 042
     Dates: start: 20070219

REACTIONS (6)
  - BACK PAIN [None]
  - BONE DENSITY ABNORMAL [None]
  - FALL [None]
  - HYSTERECTOMY [None]
  - TOOTH FRACTURE [None]
  - WRIST FRACTURE [None]
